FAERS Safety Report 5147832-2 (Version None)
Quarter: 2006Q4

REPORT INFORMATION
  Report Type: 
  Country: None (occurrence: None)
  Receive Date: 20061110
  Receipt Date: 20061107
  Transmission Date: 20070319
  Serious: Yes (Hospitalization)
  Sender: FDA-Public Use
  Company Number: US-BRISTOL-MYERS SQUIBB COMPANY-13569272

PATIENT
  Age: 75 Year
  Sex: Female

DRUGS (1)
  1. KENALOG [Suspect]
     Indication: NECK PAIN

REACTIONS (1)
  - BREAST SWELLING [None]
